FAERS Safety Report 8169937-4 (Version None)
Quarter: 2012Q1

REPORT INFORMATION
  Report Type: 
  Country: None (occurrence: None)
  Receive Date: 20120228
  Receipt Date: 20120228
  Transmission Date: 20120608
  Serious: Yes (Other)
  Sender: FDA-Public Use
  Company Number: None

PATIENT
  Age: 85 Year
  Sex: Female
  Weight: 53.523 kg

DRUGS (10)
  1. WARFARIN SODIUM [Concomitant]
     Route: 048
  2. METOPROLOL SUCCINATE EXTENDED RELEASE [Concomitant]
     Route: 048
  3. DILTIAZEM HCL [Concomitant]
     Route: 048
  4. DYAZIDE [Concomitant]
     Route: 048
  5. DIGOXIN [Concomitant]
     Route: 048
  6. SYNTHROID [Concomitant]
     Route: 048
  7. ATORVASTATIN -GENERIC- [Suspect]
     Indication: BLOOD CHOLESTEROL INCREASED
     Dosage: 40MG
     Route: 048
     Dates: start: 20120123, end: 20120225
  8. ATORVASTATIN -GENERIC- [Suspect]
     Indication: CARDIOVASCULAR EVENT PROPHYLAXIS
     Dosage: 40MG
     Route: 048
     Dates: start: 20120123, end: 20120225
  9. LUNESTA [Concomitant]
  10. AVAPRO [Concomitant]
     Route: 048

REACTIONS (6)
  - OEDEMA PERIPHERAL [None]
  - SKIN EXFOLIATION [None]
  - MUSCLE SPASMS [None]
  - PRODUCT SUBSTITUTION ISSUE [None]
  - JOINT SWELLING [None]
  - PAIN [None]
